FAERS Safety Report 19118946 (Version 3)
Quarter: 2021Q3

REPORT INFORMATION
  Report Type: Spontaneous
  Country: JP (occurrence: JP)
  Receive Date: 20210410
  Receipt Date: 20210715
  Transmission Date: 20211014
  Serious: Yes (Death)
  Sender: FDA-Public Use
  Company Number: JP-JNJFOC-20210407191

PATIENT
  Age: 68 Year
  Sex: Male

DRUGS (3)
  1. ZYTIGA [Suspect]
     Active Substance: ABIRATERONE ACETATE
     Indication: PROSTATE CANCER
     Route: 048
  2. PROSEXOL [Concomitant]
     Active Substance: ETHINYL ESTRADIOL
     Dosage: DOSE UNKNOWN
     Route: 065
  3. OLAPARIB. [Concomitant]
     Active Substance: OLAPARIB
     Dosage: DOSE UNKNOWN
     Route: 065

REACTIONS (1)
  - Metastases to central nervous system [Fatal]
